FAERS Safety Report 10153759 (Version 6)
Quarter: 2015Q3

REPORT INFORMATION
  Report Type: Report from Study
  Country: CA (occurrence: CA)
  Receive Date: 20140506
  Receipt Date: 20150731
  Transmission Date: 20151125
  Serious: Yes (Other)
  Sender: FDA-Public Use
  Company Number: CA-ROCHE-1297992

PATIENT
  Age: 68 Year
  Sex: Male
  Weight: 70.3 kg

DRUGS (15)
  1. METHYLPREDNISOLONE. [Concomitant]
     Active Substance: METHYLPREDNISOLONE
     Route: 042
     Dates: start: 20130319
  2. RITUXAN [Suspect]
     Active Substance: RITUXIMAB
     Indication: GRANULOMATOSIS WITH POLYANGIITIS
  3. ZOPICLONE [Concomitant]
     Active Substance: ZOPICLONE
  4. OMEPRAZOLE. [Concomitant]
     Active Substance: OMEPRAZOLE
  5. FOLIC ACID. [Concomitant]
     Active Substance: FOLIC ACID
  6. ACETAMINOPHEN. [Concomitant]
     Active Substance: ACETAMINOPHEN
     Route: 048
  7. PREDNISONE. [Concomitant]
     Active Substance: PREDNISONE
  8. HYDROXYCHLOROQUINE [Concomitant]
     Active Substance: HYDROXYCHLOROQUINE
  9. FERROUS SULFATE [Suspect]
     Active Substance: FERROUS SULFATE\FERROUS SULFATE, DRIED
     Indication: PRODUCT USED FOR UNKNOWN INDICATION
     Route: 048
     Dates: start: 2014
  10. GABAPENTIN. [Concomitant]
     Active Substance: GABAPENTIN
  11. FENTANYL. [Concomitant]
     Active Substance: FENTANYL
     Route: 065
  12. FERROUS SULFATE [Suspect]
     Active Substance: FERROUS SULFATE\FERROUS SULFATE, DRIED
     Dosage: 1 TABLET 3 TIMES PER WEEK
     Route: 048
     Dates: start: 2014
  13. METHOTREXATE [Concomitant]
     Active Substance: METHOTREXATE
  14. RITUXAN [Suspect]
     Active Substance: RITUXIMAB
     Indication: RHEUMATOID ARTHRITIS
     Route: 042
     Dates: start: 20130304
  15. DIPHENHYDRAMINE HCL [Concomitant]
     Active Substance: DIPHENHYDRAMINE HYDROCHLORIDE
     Route: 048
     Dates: start: 20130319

REACTIONS (8)
  - Musculoskeletal stiffness [Not Recovered/Not Resolved]
  - Cataract [Not Recovered/Not Resolved]
  - Blood iron decreased [Unknown]
  - Infusion related reaction [Unknown]
  - Blood pressure diastolic decreased [Unknown]
  - Nausea [Unknown]
  - Heart rate decreased [Unknown]
  - Arthralgia [Not Recovered/Not Resolved]

NARRATIVE: CASE EVENT DATE: 201310
